FAERS Safety Report 17183043 (Version 1)
Quarter: 2019Q4

REPORT INFORMATION
  Report Type: Spontaneous
  Country: US (occurrence: US)
  Receive Date: 20191220
  Receipt Date: 20191220
  Transmission Date: 20200122
  Serious: No
  Sender: FDA-Public Use
  Company Number: US-ASTRAZENECA-2019SF68630

PATIENT
  Age: 14288 Day
  Sex: Male
  Weight: 113.4 kg

DRUGS (2)
  1. AMOXACILLIN [Concomitant]
     Indication: TOOTH INFECTION
     Route: 048
     Dates: start: 20191115
  2. FORXIGA [Suspect]
     Active Substance: DAPAGLIFLOZIN
     Indication: TYPE 2 DIABETES MELLITUS
     Route: 048
     Dates: start: 20191118

REACTIONS (1)
  - Blood glucose increased [Not Recovered/Not Resolved]

NARRATIVE: CASE EVENT DATE: 20191119
